FAERS Safety Report 11407417 (Version 23)
Quarter: 2018Q2

REPORT INFORMATION
  Report Type: Spontaneous
  Country: US (occurrence: US)
  Receive Date: 20150821
  Receipt Date: 20180420
  Transmission Date: 20180711
  Serious: Yes (Other)
  Sender: FDA-Public Use
  Company Number: US-ACTELION PHARMACEUTICALS US, INC.-A-NJ2015-121034

PATIENT
  Age: 67 Year
  Sex: Female

DRUGS (15)
  1. MOMETASONE FUROATE. [Concomitant]
     Active Substance: MOMETASONE FUROATE
     Dosage: 1000 MG, UNK
  2. BENADRYL [Concomitant]
     Active Substance: DIPHENHYDRAMINE HYDROCHLORIDE
     Dosage: 25 MG, UNK
  3. FOLIC ACID. [Concomitant]
     Active Substance: FOLIC ACID
     Dosage: 0.4 MG, UNK
  4. LANTUS [Concomitant]
     Active Substance: INSULIN GLARGINE
     Dosage: UNK
  5. SEROQUEL [Concomitant]
     Active Substance: QUETIAPINE FUMARATE
     Dosage: 100 MG, UNK
  6. EUCERIN [Concomitant]
     Active Substance: ENSULIZOLE\EUCERIN\OCTINOXATE\OCTISALATE\TITANIUM DIOXIDE\ZINC OXIDE
  7. NOVOLOG [Concomitant]
     Active Substance: INSULIN ASPART
     Dosage: 100 UNK, UNK
  8. METHOTREXATE. [Concomitant]
     Active Substance: METHOTREXATE
     Dosage: 2.5 MG, UNK
  9. MOMETASONE FUROATE. [Concomitant]
     Active Substance: MOMETASONE FUROATE
     Dosage: 0.1 %, UNK
  10. CLOBETASOL [Concomitant]
     Active Substance: CLOBETASOL
  11. VALCHLOR [Suspect]
     Active Substance: MECHLORETHAMINE
     Dosage: EVERY OTHER DAY
     Route: 061
     Dates: start: 20150608
  12. VALCHLOR [Suspect]
     Active Substance: MECHLORETHAMINE
     Indication: MYCOSIS FUNGOIDES
     Dosage: UNK, QD
     Route: 061
     Dates: start: 201506
  13. PRAMOSONE [Concomitant]
     Active Substance: HYDROCORTISONE ACETATE\PRAMOXINE HYDROCHLORIDE
     Dosage: 1 %, UNK
  14. METFORMIN [Concomitant]
     Active Substance: METFORMIN HYDROCHLORIDE
     Indication: ESSENTIAL HYPERTENSION
     Dosage: 1000 MG, UNK
  15. DESENEX NOS [Concomitant]
     Active Substance: CLOTRIMAZOLE OR MICONAZOLE NITRATE

REACTIONS (33)
  - Skin cancer [Unknown]
  - Disease progression [Unknown]
  - Ear disorder [Recovered/Resolved]
  - Eczema [Unknown]
  - Skin exfoliation [Not Recovered/Not Resolved]
  - Pruritus [Not Recovered/Not Resolved]
  - Rash pruritic [Unknown]
  - Rash generalised [Unknown]
  - Application site pain [Unknown]
  - Blood calcium increased [Unknown]
  - Therapy non-responder [Unknown]
  - Skin hyperpigmentation [Not Recovered/Not Resolved]
  - Application site rash [Unknown]
  - Application site scab [Unknown]
  - Blood glucose increased [Unknown]
  - Balance disorder [Unknown]
  - Ear infection [Recovered/Resolved]
  - Skin discolouration [Not Recovered/Not Resolved]
  - Application site inflammation [Unknown]
  - Skin fissures [Unknown]
  - Contusion [Unknown]
  - Skin burning sensation [Unknown]
  - Ephelides [Unknown]
  - Unevaluable event [Unknown]
  - Feeling abnormal [Unknown]
  - Dry skin [Not Recovered/Not Resolved]
  - Application site pruritus [Unknown]
  - Skin disorder [Unknown]
  - Swelling [Unknown]
  - Skin irritation [Unknown]
  - Erythema [Unknown]
  - Rash [Unknown]
  - Application site warmth [Unknown]

NARRATIVE: CASE EVENT DATE: 20171005
